FAERS Safety Report 18818560 (Version 8)
Quarter: 2021Q2

REPORT INFORMATION
  Report Type: Spontaneous
  Country: US (occurrence: US)
  Receive Date: 20210202
  Receipt Date: 20210519
  Transmission Date: 20210717
  Serious: Yes (Hospitalization, Other)
  Sender: FDA-Public Use
  Company Number: US-GLAXOSMITHKLINE-US2021AMR022580

PATIENT
  Age: 68 Year
  Sex: Female

DRUGS (5)
  1. ZEJULA [Suspect]
     Active Substance: NIRAPARIB
     Dosage: 200 MG, QD
     Dates: start: 20210312, end: 20210331
  2. ZEJULA [Suspect]
     Active Substance: NIRAPARIB
     Dosage: 200 MG, QD
     Dates: start: 20210407
  3. ZEJULA [Suspect]
     Active Substance: NIRAPARIB
     Indication: OVARIAN CANCER
     Dosage: 200 MG, QD
     Dates: start: 20210122
  4. ZEJULA [Suspect]
     Active Substance: NIRAPARIB
     Indication: FALLOPIAN TUBE CANCER
     Dosage: 200 MG, QD
  5. ZEJULA [Suspect]
     Active Substance: NIRAPARIB
     Dosage: 200 MG, QD
     Route: 048

REACTIONS (20)
  - Abdominal pain [Not Recovered/Not Resolved]
  - Nephrolithiasis [Unknown]
  - Flank pain [Not Recovered/Not Resolved]
  - Pelvic discomfort [Unknown]
  - Recurrent cancer [Not Recovered/Not Resolved]
  - Glomerular filtration rate abnormal [Unknown]
  - Blood urea abnormal [Unknown]
  - Urine calcium [Unknown]
  - Back pain [Not Recovered/Not Resolved]
  - Pulmonary oedema [Unknown]
  - Headache [Recovered/Resolved]
  - Myalgia [Not Recovered/Not Resolved]
  - Dysuria [Unknown]
  - Fatigue [Not Recovered/Not Resolved]
  - Arthralgia [Not Recovered/Not Resolved]
  - Chromaturia [Unknown]
  - Musculoskeletal chest pain [Unknown]
  - Blood pressure systolic increased [Recovered/Resolved]
  - Dyspnoea [Unknown]
  - Rectal neoplasm [Recovering/Resolving]

NARRATIVE: CASE EVENT DATE: 202101
